FAERS Safety Report 4962394-8 (Version None)
Quarter: 2006Q1

REPORT INFORMATION
  Report Type: 
  Country: None (occurrence: None)
  Receive Date: 20060329
  Receipt Date: 20060314
  Transmission Date: 20060701
  Serious: Yes (Death)
  Sender: FDA-Public Use
  Company Number: 2006S1002223

PATIENT
  Age: 31 Year
  Sex: Female

DRUGS (1)
  1. CLOZAPINE [Suspect]
     Indication: SCHIZOPHRENIA
     Dosage: 400 MG; HS; ORAL
     Route: 048
     Dates: start: 20021101

REACTIONS (1)
  - DEATH [None]
